FAERS Safety Report 6644568-3 (Version None)
Quarter: 2010Q1

REPORT INFORMATION
  Report Type: 
  Country: None (occurrence: None)
  Receive Date: 20100319
  Receipt Date: 20100319
  Transmission Date: 20100710
  Serious: Yes (Life-Threatening)
  Sender: FDA-Public Use
  Company Number: None

PATIENT
  Age: 49 Year
  Sex: Male
  Weight: 153 kg

DRUGS (1)
  1. ZOFRAN [Suspect]
     Indication: NAUSEA
     Dosage: ZOFRAN 4MG PRN IV
     Route: 042

REACTIONS (4)
  - DYSGEUSIA [None]
  - EXTRASYSTOLES [None]
  - EYE ROLLING [None]
  - THROAT IRRITATION [None]
